FAERS Safety Report 11428205 (Version 1)
Quarter: 2015Q3

REPORT INFORMATION
  Report Type: Spontaneous
  Country: US (occurrence: None)
  Receive Date: 20150827
  Receipt Date: 20150827
  Transmission Date: 20151125
  Serious: Yes (Disabling)
  Sender: FDA-Public Use
  Company Number: None

PATIENT
  Age: 47 Year
  Sex: Female
  Weight: 92.99 kg

DRUGS (1)
  1. ESTRADIOL. [Suspect]
     Active Substance: ESTRADIOL
     Indication: MENOPAUSAL SYMPTOMS
     Dosage: 1 PATCH BI-WEEKLY APPLIED AS MEDICATED PATCH TO SKIN
     Route: 061
     Dates: start: 20150701, end: 20150826

REACTIONS (7)
  - Wrong technique in product usage process [None]
  - Mood swings [None]
  - Hot flush [None]
  - Drug ineffective [None]
  - Weight increased [None]
  - Product substitution issue [None]
  - Disease recurrence [None]

NARRATIVE: CASE EVENT DATE: 20150801
